FAERS Safety Report 9779591 (Version 3)
Quarter: 2014Q1

REPORT INFORMATION
  Report Type: Spontaneous
  Country: US (occurrence: US)
  Receive Date: 20131223
  Receipt Date: 20140220
  Transmission Date: 20141002
  Serious: No
  Sender: FDA-Public Use
  Company Number: US-PFIZER INC-2013363132

PATIENT
  Age: 42 Year
  Sex: Male

DRUGS (4)
  1. VIAGRA [Suspect]
     Indication: SEXUAL DYSFUNCTION
     Dosage: 100 MG, AS NEEDED (1/2 APPROXIMATELY 1)
     Route: 048
  2. LORTAB [Concomitant]
     Dosage: UNK
  3. METHADONE [Concomitant]
     Dosage: UNK
  4. VALIUM [Concomitant]
     Dosage: UNK

REACTIONS (2)
  - Nasopharyngitis [Unknown]
  - Spinal disorder [Unknown]
